FAERS Safety Report 5763934-1 (Version None)
Quarter: 2008Q2

REPORT INFORMATION
  Report Type: 
  Country: None (occurrence: None)
  Receive Date: 20080602
  Receipt Date: 20080401
  Transmission Date: 20081010
  Serious: Yes (Life-Threatening)
  Sender: FDA-Public Use
  Company Number: DEP_00140_2008

PATIENT
  Sex: Male
  Weight: 87.9978 kg

DRUGS (7)
  1. PROQUIN XR [Suspect]
     Indication: PROPHYLAXIS OF NAUSEA AND VOMITING
     Dosage: (1 DF 1X DF ORAL)
     Route: 048
     Dates: start: 20080229, end: 20080229
  2. VYTORIN [Concomitant]
  3. PREVACID [Concomitant]
  4. XANAX [Concomitant]
  5. MUCINEX [Concomitant]
  6. TORADOL [Concomitant]
  7. FLOMAX [Concomitant]

REACTIONS (2)
  - DYSPNOEA [None]
  - OFF LABEL USE [None]
